FAERS Safety Report 7370290-4 (Version None)
Quarter: 2011Q1

REPORT INFORMATION
  Report Type: 
  Country: None (occurrence: None)
  Receive Date: 20110323
  Receipt Date: 20110318
  Transmission Date: 20110831
  Serious: Yes (Death, Other)
  Sender: FDA-Public Use
  Company Number: PHHY2011JP19798

PATIENT
  Age: 59 Year
  Sex: Male

DRUGS (5)
  1. GANCICLOVIR [Concomitant]
     Dosage: UNK
  2. FLUDARABINE [Concomitant]
     Dosage: 25 MG/M2 FOR 5 DAYS
  3. MELPHALAN [Concomitant]
     Dosage: 70 MG/M2 FOR 2 DAYS
  4. NEORAL [Suspect]
     Indication: ALLOGENIC BONE MARROW TRANSPLANTATION THERAPY
  5. METHOTREXATE [Concomitant]
     Dosage: UNK

REACTIONS (15)
  - RESPIRATORY DISORDER [None]
  - CYTOMEGALOVIRUS INFECTION [None]
  - ALTERED STATE OF CONSCIOUSNESS [None]
  - CEREBRAL TOXOPLASMOSIS [None]
  - AGNOSIA [None]
  - HALLUCINATION, AUDITORY [None]
  - ENCEPHALOPATHY [None]
  - PYREXIA [None]
  - ACUTE GRAFT VERSUS HOST DISEASE IN SKIN [None]
  - FRUSTRATION [None]
  - MICTURITION DISORDER [None]
  - PARKINSONISM [None]
  - PNEUMONIA CYTOMEGALOVIRAL [None]
  - MOTOR DYSFUNCTION [None]
  - MEMORY IMPAIRMENT [None]
